FAERS Safety Report 20928877 (Version 2)
Quarter: 2022Q2

REPORT INFORMATION
  Report Type: Report from Study
  Country: US (occurrence: US)
  Receive Date: 20220607
  Receipt Date: 20220621
  Transmission Date: 20220721
  Serious: Yes (Hospitalization, Other)
  Sender: FDA-Public Use
  Company Number: US-BRISTOL-MYERS SQUIBB COMPANY-2022-026344

PATIENT
  Age: 57 Year
  Sex: Male
  Weight: 117.4 kg

DRUGS (9)
  1. ROMIDEPSIN [Suspect]
     Active Substance: ROMIDEPSIN
     Indication: Allogenic stem cell transplantation
     Route: 042
     Dates: start: 20220223, end: 20220226
  2. BUSULFAN [Suspect]
     Active Substance: BUSULFAN
     Indication: Allogenic stem cell transplantation
     Dates: start: 20220223, end: 20220226
  3. FLUDARABINE [Suspect]
     Active Substance: FLUDARABINE PHOSPHATE
     Indication: Allogenic stem cell transplantation
     Dates: start: 20220223, end: 20220226
  4. TACROLIMUS [Concomitant]
     Active Substance: TACROLIMUS
     Indication: Product used for unknown indication
     Dates: start: 20220227
  5. DAPSONE [Concomitant]
     Active Substance: DAPSONE
     Indication: Prophylaxis
  6. Acyclovir letermovir [Concomitant]
     Indication: Prophylaxis
  7. FLUCONAZOLE [Concomitant]
     Active Substance: FLUCONAZOLE
     Indication: Prophylaxis
  8. METHOTREXATE [Concomitant]
     Active Substance: METHOTREXATE
     Indication: Product used for unknown indication
     Dates: start: 20220302, end: 20220312
  9. SIROLIMUS [Concomitant]
     Active Substance: SIROLIMUS
     Indication: Prophylaxis

REACTIONS (4)
  - Orthopnoea [Unknown]
  - Dyspnoea [Unknown]
  - Cardiac failure [Unknown]
  - Diarrhoea [Unknown]

NARRATIVE: CASE EVENT DATE: 20220328
